FAERS Safety Report 17584355 (Version 7)
Quarter: 2021Q4

REPORT INFORMATION
  Report Type: Spontaneous
  Country: US (occurrence: US)
  Receive Date: 20200326
  Receipt Date: 20211125
  Transmission Date: 20220303
  Serious: No
  Sender: FDA-Public Use
  Company Number: None

PATIENT
  Sex: Female

DRUGS (6)
  1. TAFINLAR [Suspect]
     Active Substance: DABRAFENIB MESYLATE
     Indication: Lung carcinoma cell type unspecified stage 0
     Dosage: 75 MG, BID
     Route: 048
     Dates: start: 20191223
  2. TAFINLAR [Suspect]
     Active Substance: DABRAFENIB MESYLATE
     Indication: Breast cancer female
     Dosage: 75 MG, QD
     Route: 048
     Dates: start: 20191224
  3. TAFINLAR [Suspect]
     Active Substance: DABRAFENIB MESYLATE
     Indication: Lung neoplasm malignant
     Dosage: 75 MG, QD
     Route: 048
     Dates: start: 20201030, end: 202111
  4. MEKINIST [Suspect]
     Active Substance: TRAMETINIB DIMETHYL SULFOXIDE
     Indication: Lung carcinoma cell type unspecified stage 0
     Dosage: 2 MG, QD
     Route: 048
     Dates: start: 20191224
  5. MEKINIST [Suspect]
     Active Substance: TRAMETINIB DIMETHYL SULFOXIDE
     Indication: Breast cancer female
     Dosage: 1.5 MG, QD
     Route: 048
     Dates: start: 20191224
  6. MEKINIST [Suspect]
     Active Substance: TRAMETINIB DIMETHYL SULFOXIDE
     Indication: Lung neoplasm malignant
     Dosage: 1.5 MG, QD
     Route: 048
     Dates: start: 20201030, end: 202111

REACTIONS (21)
  - Pain [Unknown]
  - Eye disorder [Unknown]
  - Visual impairment [Unknown]
  - Acne [Unknown]
  - Joint swelling [Unknown]
  - Skin discolouration [Unknown]
  - Weight increased [Unknown]
  - Rash [Unknown]
  - Peripheral swelling [Unknown]
  - Pyrexia [Unknown]
  - Back pain [Unknown]
  - Arthralgia [Unknown]
  - Abdominal pain [Unknown]
  - Pain in extremity [Unknown]
  - Blood pressure increased [Unknown]
  - Erythema [Unknown]
  - Muscle spasms [Unknown]
  - Blood pressure decreased [Unknown]
  - Heart rate increased [Unknown]
  - Musculoskeletal discomfort [Unknown]
  - Drug ineffective [Unknown]
